FAERS Safety Report 5314096-6 (Version None)
Quarter: 2007Q2

REPORT INFORMATION
  Report Type: 
  Country: None (occurrence: None)
  Receive Date: 20070501
  Receipt Date: 20070420
  Transmission Date: 20071010
  Serious: Yes (Other)
  Sender: FDA-Public Use
  Company Number: US-PFIZER INC-2007032892

PATIENT
  Sex: Female

DRUGS (1)
  1. CELEBREX [Suspect]
     Dates: start: 19990701, end: 20001001

REACTIONS (2)
  - PULMONARY THROMBOSIS [None]
  - SUPRAVENTRICULAR TACHYCARDIA [None]
